FAERS Safety Report 5186563-X (Version None)
Quarter: 2006Q4

REPORT INFORMATION
  Report Type: 
  Country: None (occurrence: None)
  Receive Date: 20061213
  Receipt Date: 20061129
  Transmission Date: 20070319
  Serious: Yes (Hospitalization)
  Sender: FDA-Public Use
  Company Number: 2006EU003182

PATIENT
  Age: 62 Year
  Sex: Male

DRUGS (1)
  1. FK506 (TACROLIMUS CAPSULES) [Suspect]
     Indication: RENAL TRANSPLANT
     Dosage: 4 MG, ORAL
     Route: 048
     Dates: start: 20060822, end: 20061123

REACTIONS (1)
  - ARTERIAL THROMBOSIS LIMB [None]
